FAERS Safety Report 22011588 (Version 2)
Quarter: 2023Q1

REPORT INFORMATION
  Report Type: Spontaneous
  Country: AU (occurrence: AU)
  Receive Date: 20230220
  Receipt Date: 20230320
  Transmission Date: 20230417
  Serious: Yes (Other)
  Sender: FDA-Public Use
  Company Number: AU-NALPROPION PHARMACEUTICALS INC.-AU-2023CUR000651

PATIENT
  Sex: Female

DRUGS (1)
  1. CONTRAVE [Suspect]
     Active Substance: BUPROPION HYDROCHLORIDE\NALTREXONE HYDROCHLORIDE
     Indication: Product used for unknown indication
     Dosage: UNK (TOOK 4 TABLETS IN TOTAL)
     Route: 065

REACTIONS (3)
  - Suicidal ideation [Recovering/Resolving]
  - Depressed mood [Recovered/Resolved]
  - Insomnia [Recovering/Resolving]
